FAERS Safety Report 21166764 (Version 1)
Quarter: 2022Q3

REPORT INFORMATION
  Report Type: Spontaneous
  Country: PT (occurrence: PT)
  Receive Date: 20220803
  Receipt Date: 20220803
  Transmission Date: 20221027
  Serious: Yes (Other)
  Sender: FDA-Public Use
  Company Number: PT-MYLANLABS-2022M1080107

PATIENT
  Age: 30 Year
  Sex: Female

DRUGS (3)
  1. ARIPIPRAZOLE [Suspect]
     Active Substance: ARIPIPRAZOLE
     Indication: Product used for unknown indication
     Dosage: 30 MG, QD
     Route: 065
  2. RISPERIDONE [Suspect]
     Active Substance: RISPERIDONE
     Indication: Product used for unknown indication
     Dosage: 6 MG, QD
     Route: 065
  3. OLANZAPINE [Suspect]
     Active Substance: OLANZAPINE
     Indication: Product used for unknown indication
     Dosage: UP TO 20 MG, QD
     Route: 065

REACTIONS (10)
  - Respiratory distress [Unknown]
  - Drug dependence [Recovered/Resolved]
  - Shock [Recovered/Resolved]
  - Delirium [Recovered/Resolved]
  - Hallucination, auditory [Unknown]
  - Persecutory delusion [Unknown]
  - Behaviour disorder [Recovering/Resolving]
  - Psychomotor hyperactivity [Unknown]
  - Extrapyramidal disorder [Recovered/Resolved]
  - Drug ineffective [Unknown]
